FAERS Safety Report 9663419 (Version 2)
Quarter: 2013Q4

REPORT INFORMATION
  Report Type: Spontaneous
  Country: US (occurrence: US)
  Receive Date: 20131101
  Receipt Date: 20131125
  Transmission Date: 20140711
  Serious: Yes (Other)
  Sender: FDA-Public Use
  Company Number: US-RANBAXY-2013US-74646

PATIENT
  Age: 78 Year
  Sex: Male

DRUGS (2)
  1. DONEPEZIL [Suspect]
     Indication: DEMENTIA
     Dosage: 1 DF, QD
     Route: 048
     Dates: start: 201306
  2. ATENOLOL [Concomitant]
     Indication: HYPERTENSION
     Dosage: UNK
     Route: 065

REACTIONS (5)
  - Local swelling [Not Recovered/Not Resolved]
  - Abdominal discomfort [Not Recovered/Not Resolved]
  - Decreased appetite [Recovered/Resolved]
  - Arrhythmia [Not Recovered/Not Resolved]
  - Nausea [Unknown]
